FAERS Safety Report 6929690-6 (Version None)
Quarter: 2010Q3

REPORT INFORMATION
  Report Type: 
  Country: None (occurrence: None)
  Receive Date: 20100818
  Receipt Date: 20100812
  Transmission Date: 20110219
  Serious: Yes (Other)
  Sender: FDA-Public Use
  Company Number: GB-NOVOPROD-312643

PATIENT
  Sex: Female

DRUGS (8)
  1. LEVEMIR [Suspect]
     Indication: TYPE 2 DIABETES MELLITUS
     Dosage: 10 IU, SINGLE
     Route: 058
     Dates: start: 20100721, end: 20100721
  2. GLICLAZIDE [Concomitant]
     Dosage: 160 MG, BID
  3. CANDESARTAN [Concomitant]
     Dosage: 4 MG, UNK
  4. FRUSEMIDE                          /00032601/ [Concomitant]
     Dosage: 40 MG, UNK
  5. SIMVASTATIN [Concomitant]
     Dosage: 40 MG, UNK
  6. AMLODIPINE [Concomitant]
     Dosage: 5 MG, UNK
  7. ASPIRIN [Concomitant]
     Dosage: 75 MG, UNK
  8. OMEPRAZOLE [Concomitant]

REACTIONS (6)
  - DIZZINESS [None]
  - DYSPNOEA [None]
  - NAUSEA [None]
  - RASH GENERALISED [None]
  - TREMOR [None]
  - URTICARIA [None]
